FAERS Safety Report 6857402-3 (Version None)
Quarter: 2010Q3

REPORT INFORMATION
  Report Type: 
  Country: None (occurrence: None)
  Receive Date: 20100719
  Receipt Date: 20080118
  Transmission Date: 20110219
  Serious: No
  Sender: FDA-Public Use
  Company Number: US-PFIZER INC-2008008290

PATIENT
  Sex: Female
  Weight: 59.09 kg

DRUGS (1)
  1. CHANTIX [Suspect]
     Indication: SMOKING CESSATION THERAPY
     Route: 048
     Dates: start: 20080116

REACTIONS (4)
  - HEADACHE [None]
  - IMPAIRED WORK ABILITY [None]
  - THINKING ABNORMAL [None]
  - VOMITING [None]
